FAERS Safety Report 4375741-5 (Version None)
Quarter: 2004Q2

REPORT INFORMATION
  Report Type: 
  Country: None (occurrence: None)
  Receive Date: 20040608
  Receipt Date: 20030307
  Transmission Date: 20050107
  Serious: Yes (Other)
  Sender: FDA-Public Use
  Company Number: 200310815BCC

PATIENT
  Age: 70 Year
  Sex: Male
  Weight: 90.7194 kg

DRUGS (3)
  1. ALEVE [Suspect]
     Indication: PAIN
     Dosage: 220 MG, BID, ORAL
     Route: 048
     Dates: start: 20030115, end: 20030306
  2. ADVANCED BONE AND JOINT COMPOUND [Concomitant]
  3. ASPIRIN [Suspect]
     Dosage: 81 MG, QD, ORAL
     Dates: start: 20030115, end: 20030207

REACTIONS (1)
  - HAEMORRHOIDAL HAEMORRHAGE [None]
